FAERS Safety Report 16527352 (Version 1)
Quarter: 2019Q3

REPORT INFORMATION
  Report Type: Spontaneous
  Country: US (occurrence: US)
  Receive Date: 20190704
  Receipt Date: 20190704
  Transmission Date: 20191004
  Serious: No
  Sender: FDA-Public Use
  Company Number: US-009507513-1906USA007537

PATIENT
  Sex: Female

DRUGS (4)
  1. PREGNYL [Suspect]
     Active Substance: CHORIOGONADOTROPIN ALFA
     Indication: INFERTILITY FEMALE
     Dosage: 100.00 UNITS, ONCE, INJ SC
     Route: 058
     Dates: start: 20171216
  2. VITAMINS (UNSPECIFIED) [Concomitant]
     Active Substance: VITAMINS
  3. APRI [Concomitant]
     Active Substance: DESOGESTREL\ETHINYL ESTRADIOL
  4. MINERALS (UNSPECIFIED) [Concomitant]

REACTIONS (3)
  - Myalgia [Unknown]
  - Discomfort [Unknown]
  - Eating disorder [Unknown]
